FAERS Safety Report 20391669 (Version 1)
Quarter: 2022Q1

REPORT INFORMATION
  Report Type: Spontaneous
  Country: US (occurrence: US)
  Receive Date: 20220128
  Receipt Date: 20220128
  Transmission Date: 20220423
  Serious: No
  Sender: FDA-Public Use
  Company Number: US-GSKCCFUS-Case-01270681_AE-74265

PATIENT
  Age: 81 Year
  Sex: Male

DRUGS (1)
  1. FLOVENT HFA [Suspect]
     Active Substance: FLUTICASONE PROPIONATE
     Indication: Product used for unknown indication
     Dosage: 110MCG
     Route: 055
     Dates: end: 20220116

REACTIONS (2)
  - Toothache [Recovered/Resolved]
  - Dental discomfort [Unknown]

NARRATIVE: CASE EVENT DATE: 20211124
